FAERS Safety Report 20947399 (Version 1)
Quarter: 2022Q2

REPORT INFORMATION
  Report Type: Other
  Country: IT (occurrence: IT)
  Receive Date: 20220610
  Receipt Date: 20220610
  Transmission Date: 20220721
  Serious: No
  Sender: FDA-Public Use
  Company Number: IT-THERATECHNOLOGIES EUROPE LIMITED-2022-THE-TRO-000095

PATIENT
  Age: 58 Year
  Sex: Female
  Weight: 70 kg

DRUGS (3)
  1. TROGARZO [Suspect]
     Active Substance: IBALIZUMAB-UIYK
     Indication: Antiretroviral therapy
     Dosage: UNK
     Route: 042
     Dates: start: 20220303, end: 20220331
  2. DESCOVY [Concomitant]
     Active Substance: EMTRICITABINE\TENOFOVIR ALAFENAMIDE FUMARATE
     Indication: Antiretroviral therapy
     Dosage: UNK
     Dates: start: 20180102, end: 20220413
  3. TIVICAY [Concomitant]
     Active Substance: DOLUTEGRAVIR SODIUM
     Indication: Antiretroviral therapy
     Dosage: UNK
     Route: 048
     Dates: start: 20180102, end: 20220413

REACTIONS (1)
  - Rash [Unknown]

NARRATIVE: CASE EVENT DATE: 20220407
